FAERS Safety Report 9108423 (Version 4)
Quarter: 2013Q1

REPORT INFORMATION
  Report Type: Report from Study
  Country: US (occurrence: US)
  Receive Date: 20130222
  Receipt Date: 20130314
  Transmission Date: 20140127
  Serious: Yes (Hospitalization, Other)
  Sender: FDA-Public Use
  Company Number: US-US-EMD SERONO, INC.-7194469

PATIENT
  Age: 55 None
  Sex: Male

DRUGS (2)
  1. REBIF [Suspect]
     Indication: MULTIPLE SCLEROSIS
     Route: 058
     Dates: start: 20130114, end: 20130220
  2. REBIF [Suspect]
     Route: 058
     Dates: start: 20130301

REACTIONS (13)
  - Loss of consciousness [Unknown]
  - Heart rate decreased [Unknown]
  - Abasia [Unknown]
  - Multiple sclerosis [Not Recovered/Not Resolved]
  - Fall [Unknown]
  - Hypotension [Unknown]
  - Hyperglycaemia [Unknown]
  - Dyspnoea [Unknown]
  - Dizziness [Not Recovered/Not Resolved]
  - Muscular weakness [Unknown]
  - Gait disturbance [Not Recovered/Not Resolved]
  - Pain in extremity [Unknown]
  - Fatigue [Not Recovered/Not Resolved]
